FAERS Safety Report 8055627-5 (Version None)
Quarter: 2012Q1

REPORT INFORMATION
  Report Type: 
  Country: None (occurrence: None)
  Receive Date: 20120119
  Receipt Date: 20120112
  Transmission Date: 20120608
  Serious: Yes (Other)
  Sender: FDA-Public Use
  Company Number: JP-AMGEN-JPNCT2010009878

PATIENT
  Age: 66 Year
  Sex: Male
  Weight: 75 kg

DRUGS (15)
  1. PANITUMUMAB [Suspect]
     Dosage: 6 MG/KG, Q2WK
     Route: 041
     Dates: start: 20110415, end: 20110520
  2. PANITUMUMAB [Suspect]
     Dosage: 4.8 MG/KG, Q2WK
     Route: 041
     Dates: start: 20110617, end: 20110715
  3. OXALIPLATIN [Suspect]
     Indication: COLORECTAL CANCER
     Dosage: 150 MG, Q2WK
     Route: 041
     Dates: start: 20101112, end: 20101203
  4. LEVOLEUCOVORIN CALCIUM [Concomitant]
     Indication: COLORECTAL CANCER
     Dosage: 366 MG, Q2WK
     Route: 041
     Dates: start: 20101112, end: 20101203
  5. FLUOROURACIL [Concomitant]
     Indication: COLORECTAL CANCER
     Dosage: 730 MG, Q2WK
     Route: 040
     Dates: start: 20101112, end: 20101203
  6. FLUOROURACIL [Concomitant]
     Dosage: 748 MG, Q2WK
     Route: 040
     Dates: start: 20101217
  7. PANITUMUMAB [Suspect]
     Indication: COLORECTAL CANCER
     Dosage: 6 MG/KG, Q2WK
     Route: 041
     Dates: start: 20101112, end: 20110318
  8. LEVOLEUCOVORIN CALCIUM [Concomitant]
     Dosage: 375 MG, Q2WK
     Route: 041
     Dates: start: 20101217
  9. IRINOTECAN HYDROCHLORIDE [Concomitant]
     Indication: COLORECTAL CANCER
     Dosage: 280 MG, Q2WK
     Route: 041
     Dates: start: 20101217
  10. PANITUMUMAB [Suspect]
     Dosage: 6 MG/KG, Q2WK
     Route: 041
     Dates: start: 20110812, end: 20110906
  11. FLUOROURACIL [Concomitant]
     Dosage: 4488 MG, Q2WK
     Route: 041
     Dates: start: 20101217
  12. CORTICOSTEROIDS [Concomitant]
     Indication: PROPHYLAXIS
     Route: 065
  13. PANITUMUMAB [Suspect]
     Dosage: 6 MG/KG, Q2WK
     Route: 041
     Dates: start: 20111025
  14. FLUOROURACIL [Concomitant]
     Dosage: 4350 MG, Q2WK
     Route: 041
     Dates: start: 20101112, end: 20101203
  15. ANTIHISTAMINES [Concomitant]
     Indication: PROPHYLAXIS
     Route: 065

REACTIONS (5)
  - IMPLANT SITE NECROSIS [None]
  - BLOOD CALCIUM INCREASED [None]
  - IMPLANT SITE ERYTHEMA [None]
  - DRUG HYPERSENSITIVITY [None]
  - WOUND DEHISCENCE [None]
